FAERS Safety Report 8791971 (Version 1)
Quarter: 2012Q4

REPORT INFORMATION
  Report Type: 
  Country: DE (occurrence: DE)
  Receive Date: 20120918
  Receipt Date: 20120918
  Transmission Date: 20130627
  Serious: Yes (Hospitalization, Other)
  Sender: FDA-Public Use
  Company Number: DE-PFIZER INC-2012226643

PATIENT
  Sex: Female
  Weight: 62.8 kg

DRUGS (6)
  1. GENOTROPIN [Suspect]
     Dosage: 0.15 mg, 1x/day, 7inj/wk
     Route: 058
     Dates: start: 20030930, end: 20040510
  2. HYDROCORTISONE [Concomitant]
     Indication: BLOOD CORTICOTROPHIN DECREASED
     Dosage: UNK
     Dates: start: 19971217
  3. CALCIUM [Concomitant]
     Indication: OSTEOPOROSIS
     Dosage: UNK
     Dates: start: 19970518
  4. VITAMIN D [Concomitant]
     Indication: VITAMIN D DEFICIENCY
     Dosage: UNK
     Dates: start: 19970518
  5. NORVASC [Concomitant]
     Indication: HYPERTENSION
     Dosage: UNK
     Dates: start: 20010924
  6. BLOPRESS [Concomitant]
     Indication: HYPERTENSION
     Dosage: UNK
     Dates: start: 20020424

REACTIONS (1)
  - Cerebrovascular accident [Unknown]
